FAERS Safety Report 13420385 (Version 1)
Quarter: 2017Q2

REPORT INFORMATION
  Report Type: Other
  Country: US (occurrence: US)
  Receive Date: 20170408
  Receipt Date: 20170408
  Transmission Date: 20170830
  Serious: Yes (Life-Threatening)
  Sender: FDA-Public Use
  Company Number: US-AJANTA PHARMA USA INC.-1065170

PATIENT
  Age: 52 Year
  Sex: Male

DRUGS (2)
  1. ALCOHOL. [Suspect]
     Active Substance: ALCOHOL
  2. OLANZAPINE (ANDA 206711) [Suspect]
     Active Substance: OLANZAPINE
     Indication: AGITATION
     Route: 030

REACTIONS (2)
  - Respiratory arrest [Recovered/Resolved]
  - Pneumonia aspiration [Unknown]

NARRATIVE: CASE EVENT DATE: 20160801
